FAERS Safety Report 24357981 (Version 1)
Quarter: 2024Q3

REPORT INFORMATION
  Report Type: Report from Study
  Country: US (occurrence: US)
  Receive Date: 20240924
  Receipt Date: 20240924
  Transmission Date: 20241017
  Serious: Yes (Hospitalization, Other)
  Sender: BAYER
  Company Number: US-BAYER-2024A124066

PATIENT
  Age: 59 Year
  Sex: Female

DRUGS (1)
  1. STIVARGA [Suspect]
     Active Substance: REGORAFENIB MONOHYDRATE
     Indication: Colorectal cancer metastatic
     Dosage: 80 MG, QD FOR 21 DAYS FOLLOWED BY 7 DAYS REST REPEAT CYCLE EVERY 28 DAYS
     Route: 048
     Dates: start: 20240817

REACTIONS (8)
  - Hyperhidrosis [Recovering/Resolving]
  - Dehydration [Recovering/Resolving]
  - Chills [None]
  - Pneumonia [Recovering/Resolving]
  - Asthenia [Recovering/Resolving]
  - Hypertension [Not Recovered/Not Resolved]
  - Headache [None]
  - Off label use [None]

NARRATIVE: CASE EVENT DATE: 20240823
